FAERS Safety Report 9747766 (Version 2)
Quarter: 2014Q1

REPORT INFORMATION
  Report Type: Spontaneous
  Country: GB (occurrence: None)
  Receive Date: 20131206
  Receipt Date: 20140304
  Transmission Date: 20141002
  Serious: Yes (Hospitalization, Other)
  Sender: FDA-Public Use
  Company Number: KAD201311-001543

PATIENT
  Age: 61 Year
  Sex: Male
  Weight: 73 kg

DRUGS (17)
  1. RIBAVIRIN (RIBAVIRIN) [Suspect]
     Indication: CHRONIC HEPATITIS C
     Route: 048
     Dates: start: 20120919, end: 20120926
  2. PEGINTERFERON ALFA-2B (PEGINTERFERON ALFA-2B) [Suspect]
     Indication: CHRONIC HEPATITIS C
     Dosage: INJECTION, 180 MCG/WEEK, SUBCUTANEOUS
     Route: 058
     Dates: start: 20120919, end: 20120926
  3. TELAPREVIR (TELAPREVIR) [Suspect]
     Indication: CHRONIC HEPATITIS C
     Route: 048
     Dates: start: 20120919, end: 20120926
  4. OMEPRAZOLE (OMEPRAZOLE) [Concomitant]
  5. ADCAL (CALCIUM CARBONATE) [Concomitant]
  6. AMITRIPTYLINE (AMITRIPTYLINE) [Concomitant]
  7. ASPIRIN (ACETYLSALICYLIC ACID) [Concomitant]
  8. BISOPROLOL (BISOPROLOL) [Concomitant]
  9. BUPRENOPHINE (BUPRENORPHINE) [Concomitant]
  10. FLUCLOXACILLIN (FLUCLOXACILLIN) [Concomitant]
  11. FOLIC ACID (FOLIC ACID) [Concomitant]
  12. GABAPENTIN (GABAPENTIN) [Concomitant]
  13. PREDNISOLONE (PREDNISOLONE) [Concomitant]
  14. QUININE SULPHATE (QUININE SULPHATE) [Concomitant]
  15. RAMIPRIL (RAMIPRIL) [Concomitant]
  16. SALBUTAMOL (SALBUTAMOL) [Concomitant]
  17. TIOTROPIUM (TIOTROPIUM BROMIDE) [Concomitant]

REACTIONS (2)
  - Cellulitis [None]
  - Joint effusion [None]
